FAERS Safety Report 21474555 (Version 1)
Quarter: 2022Q4

REPORT INFORMATION
  Report Type: Spontaneous
  Country: US (occurrence: None)
  Receive Date: 20221018
  Receipt Date: 20221018
  Transmission Date: 20230113
  Serious: Yes (Hospitalization, Other)
  Sender: FDA-Public Use
  Company Number: US-USWM, LLC-UWM202210-000031

PATIENT
  Age: 52 Year
  Sex: Female

DRUGS (5)
  1. NADOLOL [Suspect]
     Active Substance: NADOLOL
     Indication: Product used for unknown indication
     Dosage: NOT PROVIDED
  2. QUETIAPINE [Concomitant]
     Active Substance: QUETIAPINE
     Dosage: NOT PROVIDED
  3. OXYCODONE [Concomitant]
     Active Substance: OXYCODONE
     Dosage: NOT PROVIDED
  4. ACETAMINOPHEN [Concomitant]
     Active Substance: ACETAMINOPHEN
     Dosage: NOT PROVIDED
  5. CLONAZEPAM [Concomitant]
     Active Substance: CLONAZEPAM
     Dosage: NOT PROVIDED

REACTIONS (3)
  - Shock [Recovered/Resolved]
  - Unresponsive to stimuli [Recovered/Resolved]
  - Overdose [Unknown]
